FAERS Safety Report 10495173 (Version 2)
Quarter: 2015Q1

REPORT INFORMATION
  Report Type: Report from Study
  Country: US (occurrence: US)
  Receive Date: 20141003
  Receipt Date: 20150306
  Transmission Date: 20150720
  Serious: Yes (Hospitalization, Other)
  Sender: FDA-Public Use
  Company Number: US-PFIZER INC-2014264964

PATIENT
  Age: 73 Year
  Sex: Female

DRUGS (6)
  1. BEVACIZUMAB [Suspect]
     Active Substance: BEVACIZUMAB
     Indication: COLORECTAL CANCER METASTATIC
     Dosage: 5 MG/KG, 1 IN 2 WK
     Route: 042
     Dates: start: 20140516, end: 20140713
  2. IRINOTECAN HCL [Suspect]
     Active Substance: IRINOTECAN HYDROCHLORIDE
     Indication: COLORECTAL CANCER METASTATIC
     Dosage: 180 MG/M2 (311 MG), MONTHLY
     Route: 042
     Dates: start: 20140620, end: 20140711
  3. FLUOROURACIL. [Suspect]
     Active Substance: FLUOROURACIL
     Indication: COLORECTAL CANCER METASTATIC
     Dosage: 3321.6 MG (1920 MG/M2), 1 IN 2 WK
     Route: 042
     Dates: start: 20140516, end: 20140629
  4. FLUOROURACIL. [Suspect]
     Active Substance: FLUOROURACIL
     Dosage: 400 MG/M2, 1 IN 2 WK
     Route: 040
     Dates: start: 20140516
  5. CALCIUM FOLINATE [Suspect]
     Active Substance: LEUCOVORIN CALCIUM
     Indication: COLORECTAL CANCER METASTATIC
     Dosage: 400 MG/M2, 1 IN 2 WK
     Route: 042
     Dates: start: 20140516, end: 20140713
  6. OXALIPLATIN. [Suspect]
     Active Substance: OXALIPLATIN
     Indication: COLORECTAL CANCER METASTATIC
     Dosage: 65 MG/M2, 1 IN 2 WK
     Route: 042
     Dates: start: 20140516, end: 20140713

REACTIONS (3)
  - Neutropenic sepsis [Recovered/Resolved]
  - Encephalopathy [Not Recovered/Not Resolved]
  - Hypokalaemia [Recovered/Resolved]

NARRATIVE: CASE EVENT DATE: 20140629
